FAERS Safety Report 8854882 (Version 2)
Quarter: 2012Q4

REPORT INFORMATION
  Report Type: 
  Country: US (occurrence: US)
  Receive Date: 20121023
  Receipt Date: 20121127
  Transmission Date: 20130627
  Serious: Yes (Other)
  Sender: FDA-Public Use
  Company Number: US-PFIZER INC-2012256401

PATIENT
  Age: 68 Year
  Sex: Female
  Weight: 103 kg

DRUGS (18)
  1. LIPITOR [Suspect]
     Indication: BLOOD CHOLESTEROL ABNORMAL
     Dosage: 10 mg, 1x/day
     Dates: start: 2005
  2. LIPITOR [Suspect]
     Dosage: 10 mg, every night at bedtime
     Route: 048
     Dates: start: 201207, end: 20121017
  3. AMLODIPINE BESILATE [Concomitant]
     Indication: CARDIAC DISORDER
     Dosage: 5 mg, 1x/day
     Route: 048
  4. ASPIRIN [Concomitant]
     Indication: CARDIAC DISORDER
     Dosage: 81 mg, 1x/day
     Route: 048
     Dates: start: 20120203
  5. DIOVAN [Concomitant]
     Dosage: 160 mg, 1x/day
     Route: 048
     Dates: start: 20121017
  6. PRADAXA [Concomitant]
     Dosage: 150 mg, 2x/day
     Route: 048
     Dates: start: 201209
  7. TIKOSYN [Concomitant]
     Indication: ATRIAL FIBRILLATION
     Dosage: 250 ug, every 12 hours
     Route: 048
     Dates: start: 20120823
  8. TIKOSYN [Concomitant]
     Indication: ATRIAL FLUTTER
  9. MAGNESIUM OXIDE [Concomitant]
     Dosage: 400 mg, 1x/day
     Route: 048
     Dates: start: 20120823
  10. KLOR-CON M20 [Concomitant]
     Dosage: 20 mEq, 1x/day
     Route: 048
     Dates: start: 20120823
  11. FISH OIL [Concomitant]
     Dosage: 1 DF, 1x/day
     Route: 048
     Dates: start: 20120524
  12. OSCO VITAMIN C [Concomitant]
     Dosage: 1 DF, 1x/day
     Route: 048
     Dates: start: 20120524
  13. XOPENEX HFA [Concomitant]
     Dosage: 45 MCG/ACT, 2 puffs three times a day, as needed
     Route: 055
     Dates: start: 20120224
  14. FLOVENT HFA [Concomitant]
     Dosage: 44 MCG/ ACT, 1 puff, 2x/day
     Route: 055
     Dates: start: 20120921
  15. LORATADINE [Concomitant]
     Dosage: 10 mg, 1x/day
     Route: 048
     Dates: start: 20120531
  16. ZOLPIDEM TARTRATE [Concomitant]
     Dosage: 5 mg, 1x/day, every night at bedtime
     Route: 048
     Dates: start: 20120203
  17. LORAZEPAM [Concomitant]
     Dosage: 0.5 mg, twice a day, as needed
     Route: 048
     Dates: start: 20120203
  18. SOMA [Concomitant]
     Dosage: 350 mg, 2x/day
     Route: 048
     Dates: start: 20120923

REACTIONS (9)
  - Cataract [Unknown]
  - Myalgia [Not Recovered/Not Resolved]
  - Myalgia [Unknown]
  - Musculoskeletal pain [Unknown]
  - Neck pain [Unknown]
  - Muscle spasms [Unknown]
  - Vision blurred [Unknown]
  - Nausea [Unknown]
  - Headache [Unknown]
